FAERS Safety Report 21841222 (Version 1)
Quarter: 2023Q1

REPORT INFORMATION
  Report Type: Report from Study
  Country: US (occurrence: US)
  Receive Date: 20230110
  Receipt Date: 20230110
  Transmission Date: 20230418
  Serious: No
  Sender: FDA-Public Use
  Company Number: US-ABBVIE-4228888

PATIENT
  Sex: Female

DRUGS (1)
  1. SKYRIZI [Suspect]
     Active Substance: RISANKIZUMAB-RZAA
     Indication: Psoriasis
     Route: 058

REACTIONS (8)
  - Memory impairment [Unknown]
  - Acne [Unknown]
  - Bite [Unknown]
  - Skin disorder [Unknown]
  - Cough [Unknown]
  - Scratch [Unknown]
  - Urticaria [Unknown]
  - Hypersensitivity [Unknown]
